FAERS Safety Report 9696906 (Version 3)
Quarter: 2015Q3

REPORT INFORMATION
  Report Type: Spontaneous
  Country: US (occurrence: US)
  Receive Date: 20131119
  Receipt Date: 20150803
  Transmission Date: 20151125
  Serious: No
  Sender: FDA-Public Use
  Company Number: US-GILEAD-2007-0013435

PATIENT
  Sex: Female

DRUGS (4)
  1. THYROID MEDICATION [Concomitant]
     Active Substance: UNSPECIFIED INGREDIENT
  2. LETAIRIS [Suspect]
     Active Substance: AMBRISENTAN
     Indication: PULMONARY ARTERIAL HYPERTENSION
     Route: 065
     Dates: start: 20070905
  3. OXYGEN. [Concomitant]
     Active Substance: OXYGEN
  4. LASIX [Concomitant]
     Active Substance: FUROSEMIDE

REACTIONS (3)
  - Dyspnoea [Recovered/Resolved]
  - Chest pain [Recovering/Resolving]
  - Headache [Recovering/Resolving]

NARRATIVE: CASE EVENT DATE: 200709
